FAERS Safety Report 9409365 (Version 1)
Quarter: 2013Q2

REPORT INFORMATION
  Report Type: Spontaneous
  Country: US (occurrence: CA)
  Receive Date: 20130423
  Receipt Date: 20130423
  Transmission Date: 20140414
  Serious: Yes (Other)
  Sender: FDA-Public Use
  Company Number: JPI-P-019999

PATIENT
  Age: 21 Year
  Sex: Female
  Weight: 52.16 kg

DRUGS (11)
  1. XYREM (500 MG/ML SOLUTION)(SODIUM OXYBATE) [Suspect]
     Indication: CATAPLEXY
     Dosage: 2 DOSES OF 2.25 GM AT NIGHT/BEDTIME.
     Route: 048
     Dates: start: 20110324, end: 20110406
  2. TRAZODONE [Concomitant]
  3. LAMOTRIGINE [Concomitant]
  4. DULOXETINE [Concomitant]
  5. MINOCYLINE 50 MG WATSON [Concomitant]
  6. DEXTROAMPHETAMINE [Concomitant]
  7. ARIPIPRAZOLE [Concomitant]
  8. MODAFINIL [Concomitant]
  9. METHYLPHENIDATE [Concomitant]
  10. ACETAMINOPHEN [Concomitant]
  11. AMITRIPTYLINE [Concomitant]

REACTIONS (8)
  - Dysphagia [None]
  - Pain [None]
  - Condition aggravated [None]
  - Insomnia [None]
  - Weight increased [None]
  - Increased appetite [None]
  - Feeling drunk [None]
  - Sleep-related eating disorder [None]
